FAERS Safety Report 7484095-7 (Version None)
Quarter: 2011Q2

REPORT INFORMATION
  Report Type: 
  Country: None (occurrence: None)
  Receive Date: 20110517
  Receipt Date: 20110503
  Transmission Date: 20111010
  Serious: Yes (Hospitalization, Other)
  Sender: FDA-Public Use
  Company Number: US-BAYER-200920226NA

PATIENT
  Age: 77 Year
  Sex: Male
  Weight: 107.3 kg

DRUGS (11)
  1. TRASYLOL [Suspect]
     Indication: CORONARY ARTERY BYPASS
     Dosage: UNK
     Route: 042
  2. HEPARIN [Concomitant]
     Dosage: MULTIPLE DOSES
     Dates: start: 20070115
  3. PROTAMINE SULFATE [Concomitant]
     Dosage: UNK
     Dates: start: 20070115
  4. ZOCOR [Concomitant]
     Dosage: 40 MG, HS
     Route: 048
  5. OMEPRAZOLE [Concomitant]
     Dosage: 20 MG, QD
     Route: 048
  6. PRAZOSIN HCL [Concomitant]
     Dosage: 1 MG, BID
     Route: 048
  7. LOSARTAN [Concomitant]
     Dosage: 25 MG, QD
     Route: 048
  8. NITROGLYCERIN [Concomitant]
     Dosage: UNK
     Dates: start: 20070115
  9. FUROSEMIDE [Concomitant]
     Dosage: UNK
     Dates: start: 20070103
  10. DOPAMINE HCL [Suspect]
     Dosage: UNK
     Dates: start: 20070115
  11. FENTANYL [Concomitant]
     Dosage: UNK
     Route: 042
     Dates: start: 20070115

REACTIONS (11)
  - UNEVALUABLE EVENT [None]
  - INJURY [None]
  - RENAL FAILURE [None]
  - RENAL IMPAIRMENT [None]
  - EMOTIONAL DISTRESS [None]
  - STRESS [None]
  - RENAL INJURY [None]
  - ANHEDONIA [None]
  - ANXIETY [None]
  - FEAR [None]
  - PAIN [None]
